FAERS Safety Report 24913885 (Version 1)
Quarter: 2025Q1

REPORT INFORMATION
  Report Type: Spontaneous
  Country: CN (occurrence: CN)
  Receive Date: 20250202
  Receipt Date: 20250202
  Transmission Date: 20250409
  Serious: Yes (Other)
  Sender: BEIGENE
  Company Number: CN-BEIGENE-BGN-2025-001385

PATIENT
  Age: 62 Year
  Weight: 62 kg

DRUGS (2)
  1. TISLELIZUMAB [Suspect]
     Active Substance: TISLELIZUMAB
     Indication: Neoplasm malignant
  2. SODIUM CHLORIDE [Concomitant]
     Active Substance: SODIUM CHLORIDE
     Indication: Vehicle solution use

REACTIONS (9)
  - Laryngeal oedema [Recovering/Resolving]
  - Urticaria [Recovered/Resolved]
  - Pruritus [Recovering/Resolving]
  - Dyspnoea [Recovering/Resolving]
  - Cough [Recovering/Resolving]
  - Hypoaesthesia oral [Recovering/Resolving]
  - Lip blister [Unknown]
  - Oral mucosal blistering [Unknown]
  - Lip swelling [Not Recovered/Not Resolved]
